FAERS Safety Report 4423534-2 (Version None)
Quarter: 2004Q3

REPORT INFORMATION
  Report Type: 
  Country: None (occurrence: None)
  Receive Date: 20040811
  Receipt Date: 20040804
  Transmission Date: 20050211
  Serious: Yes (Other)
  Sender: FDA-Public Use
  Company Number: PHBS2004JP10336

PATIENT
  Age: 4 Year
  Sex: Male

DRUGS (1)
  1. AREDIA [Suspect]
     Indication: OSTEITIS DEFORMANS
     Dosage: 1 MG/KG/D
     Route: 042
     Dates: start: 20030601, end: 20030601

REACTIONS (2)
  - BONE MARROW DEPRESSION [None]
  - PANCYTOPENIA [None]
